FAERS Safety Report 5767806-8 (Version None)
Quarter: 2008Q2

REPORT INFORMATION
  Report Type: 
  Country: None (occurrence: None)
  Receive Date: 20080612
  Receipt Date: 20080606
  Transmission Date: 20081010
  Serious: Yes (Congenital Anomaly, Other)
  Sender: FDA-Public Use
  Company Number: DE-ASTRAZENECA-2008AC01346

PATIENT
  Sex: Female
  Weight: 3 kg

DRUGS (1)
  1. CANDESARTAN CILEXETIL [Suspect]
     Dosage: 7 MG DAILY
     Route: 064

REACTIONS (4)
  - ACUTE PRERENAL FAILURE [None]
  - FACIAL PALSY [None]
  - HYPOVOLAEMIA [None]
  - PARESIS [None]
